FAERS Safety Report 24933846 (Version 1)
Quarter: 2025Q1

REPORT INFORMATION
  Report Type: Report from Study
  Country: US (occurrence: US)
  Receive Date: 20250206
  Receipt Date: 20250206
  Transmission Date: 20250408
  Serious: Yes (Hospitalization, Other)
  Sender: EXELIXIS
  Company Number: US-EXELIXIS-CABO-24075210

PATIENT
  Age: 38 Year
  Sex: Female

DRUGS (1)
  1. CABOMETYX [Suspect]
     Active Substance: CABOZANTINIB S-MALATE
     Indication: Renal cancer
     Dosage: 60 MG, QD
     Route: 048
     Dates: end: 20240321

REACTIONS (11)
  - Haemorrhage [Recovered/Resolved]
  - Faeces discoloured [Recovered/Resolved]
  - Electrocauterisation [Unknown]
  - Metastases to stomach [Unknown]
  - Blood pressure increased [Unknown]
  - Erythema [Recovering/Resolving]
  - Abdominal pain upper [Not Recovered/Not Resolved]
  - Diarrhoea [Recovered/Resolved]
  - Pain in extremity [Recovering/Resolving]
  - Fatigue [Unknown]
  - Nausea [Unknown]

NARRATIVE: CASE EVENT DATE: 20240301
